FAERS Safety Report 9392678 (Version 1)
Quarter: 2013Q3

REPORT INFORMATION
  Report Type: Report from Study
  Country: NL (occurrence: NL)
  Receive Date: 20130710
  Receipt Date: 20130710
  Transmission Date: 20140515
  Serious: Yes (Death)
  Sender: FDA-Public Use
  Company Number: PHHY2013NL072875

PATIENT
  Sex: 0

DRUGS (4)
  1. ZOMETA [Suspect]
     Indication: PROSTATE CANCER METASTATIC
     Dosage: 4 MG, ONCE EVERY 4 WEEKS
     Route: 042
  2. ZOMETA [Suspect]
     Dosage: 4 MG, ONCE EVERY 4 WEEKS
     Route: 042
     Dates: start: 20110120
  3. ZOMETA [Suspect]
     Dosage: 4 MG, ONCE EVERY 4 WEEKS
     Route: 042
     Dates: start: 20130527
  4. ZOMETA [Suspect]
     Dosage: 4 MG, ONCE EVERY 4 WEEKS
     Route: 042
     Dates: start: 20130625

REACTIONS (1)
  - Death [Fatal]
